FAERS Safety Report 6856794-9 (Version None)
Quarter: 2010Q3

REPORT INFORMATION
  Report Type: 
  Country: None (occurrence: None)
  Receive Date: 20100719
  Receipt Date: 20100708
  Transmission Date: 20110219
  Serious: Yes (Hospitalization, Other)
  Sender: FDA-Public Use
  Company Number: US-AMGEN-US423775

PATIENT
  Sex: Female

DRUGS (1)
  1. ENBREL [Suspect]
     Indication: JUVENILE ARTHRITIS
     Route: 058
     Dates: start: 20000519

REACTIONS (15)
  - ARTHRALGIA [None]
  - BALANCE DISORDER [None]
  - BENIGN UTERINE NEOPLASM [None]
  - COLON ADENOMA [None]
  - COLON OPERATION [None]
  - FALLOPIAN TUBE CYST [None]
  - INJECTION SITE PAIN [None]
  - INTERVERTEBRAL DISC PROTRUSION [None]
  - LIMB DISCOMFORT [None]
  - OSTEOMYELITIS [None]
  - POLYCYSTIC OVARIES [None]
  - POST PROCEDURAL INFECTION [None]
  - PSEUDOMONAS INFECTION [None]
  - TENDON DISORDER [None]
  - TENDON RUPTURE [None]
